FAERS Safety Report 16204317 (Version 1)
Quarter: 2019Q2

REPORT INFORMATION
  Report Type: Report from Study
  Country: CA (occurrence: CA)
  Receive Date: 20190416
  Receipt Date: 20190416
  Transmission Date: 20190711
  Serious: Yes (Hospitalization, Other)
  Sender: FDA-Public Use
  Company Number: CA-PFIZER INC-2019155914

PATIENT
  Age: 68 Year
  Sex: Female
  Weight: 83 kg

DRUGS (30)
  1. PRADAXA [Concomitant]
     Active Substance: DABIGATRAN ETEXILATE MESYLATE
     Dosage: 1 TABLETS, BID (30 D)
     Route: 048
     Dates: start: 20190126, end: 20190301
  2. RALOXIFENE. [Concomitant]
     Active Substance: RALOXIFENE
     Indication: OSTEOPOROSIS
     Dosage: 1 TABLETS 1 TIME PER DAY AT BED
     Route: 065
     Dates: start: 20180902, end: 20190301
  3. ALLOPURINOL. [Concomitant]
     Active Substance: ALLOPURINOL
     Indication: GOUT
     Dosage: 1 TABLET 1 TIME PER DAY AT LUNCH
     Route: 065
     Dates: start: 20180902, end: 20190301
  4. GLYBURIDE. [Concomitant]
     Active Substance: GLYBURIDE
     Dosage: 1 TABLETS 2 TIMES A DAY AT LUNCH AND DINNER IF NECESSARY
     Route: 048
     Dates: start: 20181204, end: 20190301
  5. VITAMIN D3 [Concomitant]
     Active Substance: CHOLECALCIFEROL
     Dosage: 1 CAPSULE PER WEEK STILL ON THE SAME DAY.
     Route: 065
     Dates: start: 20180902, end: 20190301
  6. METHOTREXATE. [Concomitant]
     Active Substance: METHOTREXATE
     Dosage: TAKE 6 TABLETS (TOTAL: 15 MG) 1 TIME
     Route: 065
     Dates: start: 20171011, end: 20190301
  7. TRAMADOL. [Concomitant]
     Active Substance: TRAMADOL
     Dosage: 1 TABLETS 4 TIMES A DAY IF NEED (SERVE 60 TABLETS AT A TIME) PRN
     Route: 065
     Dates: start: 20170927, end: 20181230
  8. PERINDOPRIL ERBUMINE. [Concomitant]
     Active Substance: PERINDOPRIL ERBUMINE
     Dosage: 1 TABLET 1 TIME PER DAY BEFORE LUNCH ^PRESSURE ON THE HEART^
     Route: 065
     Dates: start: 20180901, end: 20190301
  9. AMIODARONE HCL [Suspect]
     Active Substance: AMIODARONE HYDROCHLORIDE
     Dosage: UNK, UNK
     Route: 042
  10. BENADRYL [Concomitant]
     Active Substance: DIPHENHYDRAMINE HYDROCHLORIDE
     Dosage: UNK
     Route: 065
  11. TAZOCIN [Concomitant]
     Active Substance: PIPERACILLIN SODIUM\TAZOBACTAM SODIUM
     Dosage: 2.25 MG, QID
     Route: 042
     Dates: start: 20190301, end: 20190307
  12. LOPRESOR [METOPROLOL FUMARATE] [Concomitant]
     Dosage: UNK
     Route: 042
  13. LEVOTHYROXINE. [Concomitant]
     Active Substance: LEVOTHYROXINE
     Dosage: 1 TABLETS 1 TIME PER DAY IN THE MORNING
     Route: 065
     Dates: start: 20180902, end: 20190301
  14. SOTALOL. [Concomitant]
     Active Substance: SOTALOL
     Dosage: 1 TABLETS 2 TIMES A DAY LUNCH AND DINNER
     Route: 065
     Dates: start: 20180902, end: 20190301
  15. SENNOSIDES A+B [Concomitant]
     Active Substance: SENNOSIDES A AND B
     Dosage: TAKE 1 TO 2 TABLETS 2 TIMES A DAY IF NECESSARY
     Route: 065
     Dates: start: 20180902, end: 20190301
  16. FENOFIBRATE. [Concomitant]
     Active Substance: FENOFIBRATE
     Dosage: 1 TABLETS 1 TIME PER DAY AT THE DINNER
     Route: 065
     Dates: start: 20180902, end: 20190301
  17. CLONAZEPAM. [Concomitant]
     Active Substance: CLONAZEPAM
     Dosage: TAKE 1 TABLET 2 TIMES A DAY IF NEEDED ^ANXIETY- PRN
     Route: 065
     Dates: start: 20180902, end: 20190301
  18. PANTOPRAZOL [PANTOPRAZOLE] [Concomitant]
     Active Substance: PANTOPRAZOLE
     Dosage: 1 TABLETS 1 TIME A DAY BEFORE
     Route: 065
     Dates: start: 20180902, end: 20190301
  19. FOLIC ACID. [Concomitant]
     Active Substance: FOLIC ACID
     Dosage: 1 TABLETS 1 TIME PER DAY (EXCEPT METHOTREXATE DAY)
     Route: 065
     Dates: start: 20180902, end: 20190301
  20. FABRAZYME [Suspect]
     Active Substance: AGALSIDASE BETA
     Dosage: 90 MG, Q2 (1 EVERY 2 WEEKS)
     Route: 041
     Dates: start: 20090715, end: 20190219
  21. FUROSEMIDE. [Concomitant]
     Active Substance: FUROSEMIDE
     Dosage: 1/2 TABLET (10 MG) 1 TIME PER DAY IN THE MORNING MORNING CUT IN 2 PLEASE ** PRESSURE ^
     Route: 065
     Dates: start: 20180902, end: 20190301
  22. BUPROPION. [Concomitant]
     Active Substance: BUPROPION
     Indication: DEPRESSION
     Dosage: 1 TABLET 1 TIME PER DAY IN THE MORNING
     Route: 065
     Dates: start: 20180901, end: 20190301
  23. METFORMIN [Concomitant]
     Active Substance: METFORMIN HYDROCHLORIDE
     Dosage: 1 TABLET 3 TIMES A DAY WHILE EATING
     Route: 065
     Dates: start: 20180902, end: 20190301
  24. FABRAZYME [Suspect]
     Active Substance: AGALSIDASE BETA
     Indication: FABRY^S DISEASE
     Dosage: 90 MG, QOW (1 EVERY 2 WEEKS)
     Route: 041
     Dates: start: 20071219
  25. ACETAMINOPHEN. [Concomitant]
     Active Substance: ACETAMINOPHEN
     Dosage: UNK
     Route: 065
  26. ZITHROMAX [Concomitant]
     Active Substance: AZITHROMYCIN DIHYDRATE
     Dosage: 250 MG, BID
     Route: 065
     Dates: start: 20190301, end: 20190307
  27. CLAVULIN [AMOXICILLIN SODIUM;CLAVULANATE POTASSIUM] [Concomitant]
     Active Substance: AMOXICILLIN\CLAVULANATE POTASSIUM
     Dosage: 500 MG, BID
     Route: 065
     Dates: start: 20190307, end: 20190310
  28. PRAVASTATIN. [Concomitant]
     Active Substance: PRAVASTATIN
     Indication: BLOOD CHOLESTEROL
     Dosage: 1 TABLET 1 TIME PER DAY AT BED TIME
     Route: 065
     Dates: start: 20180902, end: 20190301
  29. AMIODARONE [Concomitant]
     Active Substance: AMIODARONE
     Dosage: UNK
     Route: 048
  30. VENLAFAXINE [Concomitant]
     Active Substance: VENLAFAXINE HYDROCHLORIDE
     Indication: ANXIETY
     Dosage: 1 CAPSULE, QD, CAPSULE 1 TIME A DAY AT LUNCH WITH CAPSULE OF 75MG = 225MG; 1 CAPSULE 1 TIME A DAY AT
     Route: 065
     Dates: start: 20180902, end: 20190301

REACTIONS (46)
  - Bilirubin conjugated increased [Unknown]
  - Blood bilirubin increased [Unknown]
  - Sinusitis [Not Recovered/Not Resolved]
  - Blood potassium increased [Recovered/Resolved]
  - Atrial flutter [Recovered/Resolved]
  - Fall [Not Recovered/Not Resolved]
  - Atrial fibrillation [Unknown]
  - Mast cell activation syndrome [Unknown]
  - Blood creatinine increased [Recovered/Resolved]
  - Blood thyroid stimulating hormone increased [Not Recovered/Not Resolved]
  - Dyspnoea [Recovering/Resolving]
  - Tachycardia [Not Recovered/Not Resolved]
  - Heart rate increased [Not Recovered/Not Resolved]
  - Alanine aminotransferase increased [Unknown]
  - Cerebral atrophy [Not Recovered/Not Resolved]
  - Diabetes mellitus [Unknown]
  - Bronchitis [Unknown]
  - Blood chloride decreased [Unknown]
  - Blood sodium decreased [Recovered/Resolved]
  - Hypoglycaemia [Not Recovered/Not Resolved]
  - Hepatic steatosis [Unknown]
  - Body temperature abnormal [Not Recovered/Not Resolved]
  - Anaemia [Unknown]
  - Pneumonia [Not Recovered/Not Resolved]
  - Hepatic enzyme increased [Unknown]
  - Aspartate aminotransferase increased [Recovered/Resolved]
  - Acute kidney injury [Unknown]
  - Respiratory syncytial virus infection [Unknown]
  - Blood alkaline phosphatase decreased [Unknown]
  - Haemoglobin abnormal [Not Recovered/Not Resolved]
  - Tachyarrhythmia [Unknown]
  - Blood phosphorus increased [Unknown]
  - Psoriasis [Unknown]
  - Urinary tract infection [Unknown]
  - Syncope [Recovering/Resolving]
  - Respiratory tract infection [Unknown]
  - Gamma-glutamyltransferase increased [Unknown]
  - Chronic kidney disease [Unknown]
  - White matter lesion [Not Recovered/Not Resolved]
  - Troponin increased [Unknown]
  - Anxiety [Unknown]
  - General physical health deterioration [Not Recovered/Not Resolved]
  - Blood urea increased [Unknown]
  - Dyslipidaemia [Unknown]
  - Hypertension [Unknown]
  - Gout [Unknown]

NARRATIVE: CASE EVENT DATE: 20190226
